FAERS Safety Report 4587605-2 (Version None)
Quarter: 2005Q1

REPORT INFORMATION
  Report Type: 
  Country: None (occurrence: None)
  Receive Date: 20050218
  Receipt Date: 20041126
  Transmission Date: 20050727
  Serious: Yes (Hospitalization)
  Sender: FDA-Public Use
  Company Number: JP-MERCK-0412USA00281

PATIENT
  Age: 52 Year
  Sex: Male

DRUGS (1)
  1. PEPCID RPD [Suspect]
     Indication: GASTRITIS EROSIVE
     Route: 048
     Dates: start: 20041112, end: 20041114

REACTIONS (1)
  - LIVER DISORDER [None]
